FAERS Safety Report 24730504 (Version 2)
Quarter: 2025Q1

REPORT INFORMATION
  Report Type: Report from Study
  Country: US (occurrence: US)
  Receive Date: 20241213
  Receipt Date: 20250107
  Transmission Date: 20250409
  Serious: Yes (Other)
  Sender: ALEXION PHARMACEUTICALS
  Company Number: US-AstraZeneca-CH-00762402A

PATIENT

DRUGS (1)
  1. BENRALIZUMAB [Suspect]
     Active Substance: BENRALIZUMAB
     Route: 065

REACTIONS (4)
  - Blood disorder [Unknown]
  - Neoplasm malignant [Unknown]
  - Chronic obstructive pulmonary disease [Unknown]
  - Red blood cell count abnormal [Unknown]
